FAERS Safety Report 17216191 (Version 1)
Quarter: 2019Q4

REPORT INFORMATION
  Report Type: Spontaneous
  Country: ES (occurrence: ES)
  Receive Date: 20191230
  Receipt Date: 20191230
  Transmission Date: 20200122
  Serious: Yes (Hospitalization)
  Sender: FDA-Public Use
  Company Number: ES-INCYTE CORPORATION-2019IN013034

PATIENT

DRUGS (1)
  1. JAKAVI [Suspect]
     Active Substance: RUXOLITINIB
     Indication: GRAFT VERSUS HOST DISEASE
     Dosage: 5 MG, Q12H
     Route: 048

REACTIONS (7)
  - Product use in unapproved indication [Unknown]
  - Anaemia [Recovered/Resolved]
  - Reticulocyte count increased [Recovered/Resolved]
  - Renal failure [Recovered/Resolved]
  - Platelet count decreased [Recovered/Resolved]
  - Haemoglobin decreased [Recovered/Resolved]
  - Thrombotic microangiopathy [Recovered/Resolved]
